FAERS Safety Report 23862409 (Version 1)
Quarter: 2024Q2

REPORT INFORMATION
  Report Type: Spontaneous
  Country: US (occurrence: US)
  Receive Date: 20240516
  Receipt Date: 20240516
  Transmission Date: 20240716
  Serious: No
  Sender: FDA-Public Use
  Company Number: US-002147023-NVSC2023US167459

PATIENT
  Age: 58 Year
  Sex: Female
  Weight: 65.3 kg

DRUGS (4)
  1. IMODIUM [Suspect]
     Active Substance: LOPERAMIDE HYDROCHLORIDE
     Indication: Diarrhoea
     Dosage: UNK
     Route: 065
  2. REMODULIN [Suspect]
     Active Substance: TREPROSTINIL
     Indication: Pulmonary arterial hypertension
     Dosage: 0.071 ?G/KG (SQ)
     Route: 058
     Dates: start: 20210407
  3. ZOFRAN [Suspect]
     Active Substance: ONDANSETRON HYDROCHLORIDE
     Indication: Vomiting
     Dosage: UNK, Q4H
     Route: 065
  4. OPSUMIT [Concomitant]
     Active Substance: MACITENTAN
     Indication: Product used for unknown indication
     Dosage: UNK
     Route: 065

REACTIONS (11)
  - Weight fluctuation [Not Recovered/Not Resolved]
  - Headache [Not Recovered/Not Resolved]
  - Therapy non-responder [Unknown]
  - Fluid retention [Not Recovered/Not Resolved]
  - Diarrhoea [Not Recovered/Not Resolved]
  - Vomiting [Not Recovered/Not Resolved]
  - Infusion site pain [Not Recovered/Not Resolved]
  - Infusion site erythema [Not Recovered/Not Resolved]
  - Infusion site discharge [Not Recovered/Not Resolved]
  - Device maintenance issue [Unknown]
  - Device dislocation [Unknown]

NARRATIVE: CASE EVENT DATE: 20230701
